FAERS Safety Report 5085834-5 (Version None)
Quarter: 2006Q3

REPORT INFORMATION
  Report Type: 
  Country: None (occurrence: None)
  Receive Date: 20060817
  Receipt Date: 20060814
  Transmission Date: 20061208
  Serious: Yes (Other)
  Sender: FDA-Public Use
  Company Number: S06-USA-02141-01

PATIENT
  Age: 74 Year
  Sex: Female

DRUGS (7)
  1. LEXAPRO [Suspect]
     Dosage: 25 MG QD PO
     Route: 048
     Dates: start: 20060301, end: 20060523
  2. LEXAPRO [Suspect]
     Dates: start: 20040101, end: 20060101
  3. LEXAPRO [Suspect]
     Dosage: 20 MG QD PO
     Route: 048
     Dates: start: 20060101, end: 20060301
  4. BLOOD PRESSURE MEDICATION [Concomitant]
  5. DIURETICS [Concomitant]
  6. POTASSIUM [Concomitant]
  7. VITAMINS [Concomitant]

REACTIONS (1)
  - NO ADVERSE DRUG EFFECT [None]
